FAERS Safety Report 18702036 (Version 1)
Quarter: 2021Q1

REPORT INFORMATION
  Report Type: Spontaneous
  Country: PR (occurrence: PR)
  Receive Date: 20210105
  Receipt Date: 20210105
  Transmission Date: 20210419
  Serious: Yes (Death, Hospitalization, Other)
  Sender: FDA-Public Use
  Company Number: PR-AMNEAL PHARMACEUTICALS-2020-AMRX-04105

PATIENT
  Age: 76 Year
  Sex: Female

DRUGS (1)
  1. METHYLPREDNISOLONE SODIUM SUCCINATE. [Suspect]
     Active Substance: METHYLPREDNISOLONE SODIUM SUCCINATE
     Indication: ALLERGIC TRANSFUSION REACTION
     Dosage: 20 MILLIGRAM, SINGLE
     Route: 042

REACTIONS (3)
  - Tumour lysis syndrome [Recovering/Resolving]
  - Multiple organ dysfunction syndrome [Fatal]
  - Acute respiratory failure [Recovering/Resolving]
